FAERS Safety Report 15630988 (Version 3)
Quarter: 2018Q4

REPORT INFORMATION
  Report Type: Report from Study
  Country: None (occurrence: CH)
  Receive Date: 20181119
  Receipt Date: 20181212
  Transmission Date: 20190205
  Serious: Yes (Other)
  Sender: FDA-Public Use
  Company Number: CH-ABBVIE-18P-151-2556349-00

PATIENT
  Age: 81 Year
  Sex: Female
  Weight: 59.8 kg

DRUGS (2)
  1. MAVIRET [Suspect]
     Active Substance: GLECAPREVIR\PIBRENTASVIR
     Indication: HEPATITIS C
     Route: 048
     Dates: start: 20181017
  2. VITALUX PLUS [Concomitant]
     Active Substance: VITAMINS
     Indication: DRY AGE-RELATED MACULAR DEGENERATION
     Route: 048
     Dates: start: 2016

REACTIONS (2)
  - Dry age-related macular degeneration [Not Recovered/Not Resolved]
  - Retinal haemorrhage [Not Recovered/Not Resolved]

NARRATIVE: CASE EVENT DATE: 20181024
